FAERS Safety Report 7382193-X (Version None)
Quarter: 2011Q1

REPORT INFORMATION
  Report Type: 
  Country: None (occurrence: None)
  Receive Date: 20110329
  Receipt Date: 20101227
  Transmission Date: 20110831
  Serious: No
  Sender: FDA-Public Use
  Company Number: US-BAYER-2011-025727

PATIENT
  Sex: Male
  Weight: 100 kg

DRUGS (5)
  1. CLONIDINE [Concomitant]
  2. METOPROLOL TARTRATE [Concomitant]
  3. FISH OIL [Concomitant]
  4. TERAZOSIN [Concomitant]
  5. ONE A DAY ENERGY [Suspect]
     Indication: VITAMIN SUPPLEMENTATION
     Dosage: DAILY
     Route: 048
     Dates: start: 20100101

REACTIONS (1)
  - NAUSEA [None]
